FAERS Safety Report 8553569-X (Version None)
Quarter: 2012Q3

REPORT INFORMATION
  Report Type: 
  Country: None (occurrence: None)
  Receive Date: 20120731
  Receipt Date: 20120725
  Transmission Date: 20120928
  Serious: No
  Sender: FDA-Public Use
  Company Number: US-PFIZER INC-2012181036

PATIENT
  Sex: Female
  Weight: 101 kg

DRUGS (2)
  1. AROMASIN [Suspect]
     Indication: BREAST CANCER
     Dosage: 25 MG, DAILY
     Route: 048
     Dates: start: 20110101, end: 20120101
  2. TAMOXIFEN CITRATE [Suspect]
     Dosage: UNK
     Dates: start: 20020101

REACTIONS (1)
  - TUMOUR MARKER INCREASED [None]
